FAERS Safety Report 11503071 (Version 4)
Quarter: 2017Q1

REPORT INFORMATION
  Report Type: Spontaneous
  Country: US (occurrence: US)
  Receive Date: 20150914
  Receipt Date: 20170320
  Transmission Date: 20170428
  Serious: Yes (Other)
  Sender: FDA-Public Use
  Company Number: US-ASTELLAS-2015US030543

PATIENT
  Age: 66 Year
  Sex: Male

DRUGS (3)
  1. XTANDI [Suspect]
     Active Substance: ENZALUTAMIDE
     Indication: PROSTATE CANCER
     Dosage: 120 MG, ONCE DAILY, (40 MG X 3 CAPSULES)
     Route: 048
     Dates: start: 20150518
  2. LUPRON DEPOT [Suspect]
     Active Substance: LEUPROLIDE ACETATE
     Indication: PRODUCT USED FOR UNKNOWN INDICATION
     Dosage: UNK UNK, EVERY FOUR MONTHS
     Route: 065
  3. ZOMETA [Suspect]
     Active Substance: ZOLEDRONIC ACID
     Indication: PRODUCT USED FOR UNKNOWN INDICATION
     Dosage: UNK UNK, MONTHLY
     Route: 065

REACTIONS (13)
  - Nausea [Unknown]
  - Asthenia [Unknown]
  - Dysgeusia [Unknown]
  - Dyspepsia [Unknown]
  - Fatigue [Not Recovered/Not Resolved]
  - Eye contusion [Unknown]
  - Brain neoplasm [Unknown]
  - Underdose [Unknown]
  - Bone pain [Not Recovered/Not Resolved]
  - Fall [Unknown]
  - Fall [Unknown]
  - Decreased appetite [Unknown]
  - Muscular weakness [Unknown]

NARRATIVE: CASE EVENT DATE: 20150521
